FAERS Safety Report 12736251 (Version 2)
Quarter: 2016Q4

REPORT INFORMATION
  Report Type: Spontaneous
  Country: US (occurrence: US)
  Receive Date: 20160912
  Receipt Date: 20161005
  Transmission Date: 20170207
  Serious: Yes (Hospitalization)
  Sender: FDA-Public Use
  Company Number: US-009507513-1609USA002840

PATIENT
  Sex: Female

DRUGS (11)
  1. DIAZEPAM. [Concomitant]
     Active Substance: DIAZEPAM
     Dosage: UNK
     Route: 048
  2. FLUTICASONE [Concomitant]
     Active Substance: FLUTICASONE\FLUTICASONE PROPIONATE
     Dosage: UNK, FORMULATION: SPRAY
  3. NIFEDICAL XL [Concomitant]
     Active Substance: NIFEDIPINE
     Dosage: UNK
     Route: 048
  4. GABAPENTIN. [Concomitant]
     Active Substance: GABAPENTIN
     Dosage: UNK
     Route: 048
  5. AMITRIPTYLIN [Concomitant]
     Active Substance: AMITRIPTYLINE
     Dosage: UNK
     Route: 048
  6. AMOXICILLIN. [Concomitant]
     Active Substance: AMOXICILLIN
     Dosage: UNK
     Route: 048
  7. METOPROLOL. [Concomitant]
     Active Substance: METOPROLOL
     Dosage: UNK
     Route: 048
  8. SERTRALINE HYDROCHLORIDE. [Concomitant]
     Active Substance: SERTRALINE HYDROCHLORIDE
     Dosage: UNK
     Route: 048
  9. ZEPATIER [Suspect]
     Active Substance: ELBASVIR\GRAZOPREVIR
     Indication: CHRONIC HEPATITIS C
     Dosage: 1 TABLET, QD FOR 12 WEEKS
     Route: 048
     Dates: start: 20160613, end: 20160905
  10. CLONIDINE. [Concomitant]
     Active Substance: CLONIDINE
     Dosage: UNK
     Route: 048
  11. NORCO [Concomitant]
     Active Substance: ACETAMINOPHEN\HYDROCODONE BITARTRATE
     Route: 048

REACTIONS (5)
  - Fatigue [Not Recovered/Not Resolved]
  - Chest pain [Not Recovered/Not Resolved]
  - Fluid imbalance [Unknown]
  - Oedema peripheral [Not Recovered/Not Resolved]
  - Dyspnoea [Not Recovered/Not Resolved]

NARRATIVE: CASE EVENT DATE: 2016
